FAERS Safety Report 9885116 (Version 1)
Quarter: 2014Q1

REPORT INFORMATION
  Report Type: Spontaneous
  Country: US (occurrence: US)
  Receive Date: 20140210
  Receipt Date: 20140210
  Transmission Date: 20141002
  Serious: Yes (Hospitalization)
  Sender: FDA-Public Use
  Company Number: US-JNJFOC-20140200150

PATIENT
  Sex: Female

DRUGS (2)
  1. STELARA [Suspect]
     Indication: PSORIASIS
     Route: 058
     Dates: start: 201310, end: 201310
  2. STELARA [Suspect]
     Indication: PSORIASIS
     Route: 058
     Dates: start: 201311, end: 201311

REACTIONS (1)
  - Cardiac failure congestive [Recovered/Resolved]
